FAERS Safety Report 6493661-7 (Version None)
Quarter: 2009Q4

REPORT INFORMATION
  Report Type: 
  Country: None (occurrence: None)
  Receive Date: 20091214
  Receipt Date: 20091202
  Transmission Date: 20100525
  Serious: Yes (Hospitalization, Other)
  Sender: FDA-Public Use
  Company Number: B0603936A

PATIENT
  Age: 30 Year
  Sex: Male

DRUGS (2)
  1. PAROXETINE HCL [Suspect]
     Dosage: 680MG PER DAY
     Route: 048
  2. FLUVOXAMINE MALEATE [Suspect]
     Route: 048

REACTIONS (14)
  - AKATHISIA [None]
  - ALTERED STATE OF CONSCIOUSNESS [None]
  - CONVULSION [None]
  - GASTROINTESTINAL HYPERMOTILITY [None]
  - HYPERHIDROSIS [None]
  - HYPERREFLEXIA [None]
  - HYPERVIGILANCE [None]
  - MULTIPLE DRUG OVERDOSE INTENTIONAL [None]
  - MYDRIASIS [None]
  - MYOCLONUS [None]
  - PYREXIA [None]
  - RESPIRATORY FAILURE [None]
  - SEROTONIN SYNDROME [None]
  - SUICIDE ATTEMPT [None]
